FAERS Safety Report 24221746 (Version 1)
Quarter: 2024Q3

REPORT INFORMATION
  Report Type: Report from Study
  Country: CA (occurrence: CA)
  Receive Date: 20240819
  Receipt Date: 20240819
  Transmission Date: 20241017
  Serious: Yes (Other)
  Sender: JOHNSON AND JOHNSON
  Company Number: CA-JNJFOC-20240474712

PATIENT
  Age: 42 Year
  Sex: Female
  Weight: 55.2 kg

DRUGS (2)
  1. REMICADE [Suspect]
     Active Substance: INFLIXIMAB
     Indication: Crohn^s disease
     Route: 041
     Dates: start: 20091229
  2. REMICADE [Suspect]
     Active Substance: INFLIXIMAB
     Route: 041
     Dates: start: 20240605

REACTIONS (6)
  - Crohn^s disease [Not Recovered/Not Resolved]
  - Night sweats [Unknown]
  - Arthralgia [Unknown]
  - General physical health deterioration [Not Recovered/Not Resolved]
  - Product dose omission issue [Unknown]
  - Fungal infection [Unknown]

NARRATIVE: CASE EVENT DATE: 20240717
